FAERS Safety Report 5180939-2 (Version None)
Quarter: 2006Q4

REPORT INFORMATION
  Report Type: 
  Country: None (occurrence: None)
  Receive Date: 20061214
  Receipt Date: 20061214
  Transmission Date: 20070319
  Serious: Yes (Hospitalization)
  Sender: FDA-Public Use
  Company Number: None

PATIENT
  Age: 62 Year
  Sex: Female

DRUGS (1)
  1. IRON [Suspect]
     Indication: ANAEMIA
     Dosage: 125MG  IV  INFUSION
     Route: 042

REACTIONS (4)
  - DYSPHONIA [None]
  - INFUSION RELATED REACTION [None]
  - NAUSEA [None]
  - PAIN IN EXTREMITY [None]
